FAERS Safety Report 7010926-0 (Version None)
Quarter: 2010Q3

REPORT INFORMATION
  Report Type: 
  Country: None (occurrence: None)
  Receive Date: 20100923
  Receipt Date: 20100923
  Transmission Date: 20110219
  Serious: Yes (Other)
  Sender: FDA-Public Use
  Company Number: None

PATIENT
  Age: 54 Year
  Sex: Female
  Weight: 138.3471 kg

DRUGS (1)
  1. DIOVAN [Suspect]
     Indication: BLOOD PRESSURE
     Dosage: 1 TABLET 1XADAY ORALLY
     Route: 048
     Dates: start: 20100401, end: 20100822

REACTIONS (5)
  - DYSSTASIA [None]
  - GAIT DISTURBANCE [None]
  - HOT FLUSH [None]
  - HYPERHIDROSIS [None]
  - MUSCLE SPASMS [None]
